FAERS Safety Report 15868201 (Version 1)
Quarter: 2019Q1

REPORT INFORMATION
  Report Type: Spontaneous
  Country: US (occurrence: US)
  Receive Date: 20190125
  Receipt Date: 20190125
  Transmission Date: 20190417
  Serious: No
  Sender: FDA-Public Use
  Company Number: US-BAYER-2019-015545

PATIENT
  Age: 6 Year
  Sex: Female
  Weight: 28 kg

DRUGS (2)
  1. MIRALAX [Suspect]
     Active Substance: POLYETHYLENE GLYCOL 3350
     Indication: FAECALOMA
     Dosage: UNK, 1/2 CAP FULL IN 8OZ OF WATER
     Route: 048
  2. MIRALAX [Suspect]
     Active Substance: POLYETHYLENE GLYCOL 3350
     Indication: ABDOMINAL PAIN UPPER

REACTIONS (7)
  - Product taste abnormal [Unknown]
  - Incorrect dosage administered [Unknown]
  - Product use issue [Unknown]
  - Product use in unapproved indication [Unknown]
  - Poor quality product administered [None]
  - Drug effective for unapproved indication [None]
  - Product odour abnormal [Unknown]
